FAERS Safety Report 25022156 (Version 2)
Quarter: 2025Q1

REPORT INFORMATION
  Report Type: Spontaneous
  Country: AT (occurrence: AT)
  Receive Date: 20250228
  Receipt Date: 20250310
  Transmission Date: 20250409
  Serious: Yes (Hospitalization, Disabling)
  Sender: NOVO NORDISK
  Company Number: None

PATIENT
  Age: 70 Year
  Sex: Female

DRUGS (3)
  1. OZEMPIC [Suspect]
     Active Substance: SEMAGLUTIDE
     Route: 042
     Dates: start: 20230227, end: 20240410
  2. OZEMPIC [Suspect]
     Active Substance: SEMAGLUTIDE
     Indication: Product used for unknown indication
     Route: 042
     Dates: start: 20221122, end: 20230208
  3. WEGOVY [Suspect]
     Active Substance: SEMAGLUTIDE
     Indication: Product used for unknown indication
     Dates: start: 202404, end: 20240719

REACTIONS (2)
  - Cerebrovascular accident [Not Recovered/Not Resolved]
  - Sick leave [Not Recovered/Not Resolved]

NARRATIVE: CASE EVENT DATE: 20240822
